FAERS Safety Report 6654638-1 (Version None)
Quarter: 2010Q1

REPORT INFORMATION
  Report Type: 
  Country: None (occurrence: None)
  Receive Date: 20100326
  Receipt Date: 20100319
  Transmission Date: 20100710
  Serious: Yes (Hospitalization, Other)
  Sender: FDA-Public Use
  Company Number: PHHO2010FR02090

PATIENT
  Sex: Male
  Weight: 76 kg

DRUGS (3)
  1. MYCOPHENOLIC ACID [Suspect]
     Indication: RENAL TRANSPLANT
     Dosage: 2160 MG/DAY
     Route: 048
     Dates: start: 20091231
  2. SIMULECT [Suspect]
     Indication: RENAL TRANSPLANT
     Dosage: UNK
     Dates: start: 20091231
  3. NEORAL [Suspect]
     Indication: RENAL TRANSPLANT
     Dosage: 375 MG/DAY
     Route: 048
     Dates: start: 20091231

REACTIONS (6)
  - BACTERAEMIA [None]
  - HYPERTENSION [None]
  - PSEUDOMONAS INFECTION [None]
  - PYREXIA [None]
  - RENAL FAILURE ACUTE [None]
  - VOMITING [None]
